FAERS Safety Report 13364220 (Version 1)
Quarter: 2017Q1

REPORT INFORMATION
  Report Type: Spontaneous
  Country: CA (occurrence: US)
  Receive Date: 20170322
  Receipt Date: 20170322
  Transmission Date: 20170429
  Serious: Yes (Hospitalization)
  Sender: FDA-Public Use
  Company Number: None

PATIENT
  Age: 59 Year
  Sex: Male
  Weight: 77 kg

DRUGS (1)
  1. MEMANTINE HYDROCHLORIDE. [Suspect]
     Active Substance: MEMANTINE HYDROCHLORIDE
     Dosage: PT CONTINUED TO TAKE MEMANTINE NO DISRUPTION TO COURSE. PT ON WEEK 2 10 MG /DAY ON FEB 13 2017. FEB 16 MOVED TO THE 3RD WEEK OF 15MG/DAY. PT CONTINUED TO TAKE MEMANTINE UNTIL MARCH 15/2017.
     Dates: end: 20170213

REACTIONS (4)
  - Activities of daily living impaired [None]
  - Fall [None]
  - Hemiparesis [None]
  - Abasia [None]

NARRATIVE: CASE EVENT DATE: 20170214
